FAERS Safety Report 5519994-6 (Version None)
Quarter: 2007Q4

REPORT INFORMATION
  Report Type: 
  Country: None (occurrence: None)
  Receive Date: 20071116
  Receipt Date: 20070620
  Transmission Date: 20080405
  Serious: Yes (Hospitalization, Other)
  Sender: FDA-Public Use
  Company Number: US-ASTRAZENECA-2006UW03654

PATIENT
  Sex: Male
  Weight: 147.7 kg

DRUGS (5)
  1. SEROQUEL [Suspect]
     Indication: ANXIETY
     Dosage: 25 MG - 200 MG
     Route: 048
     Dates: start: 20001201, end: 20040601
  2. SEROQUEL [Suspect]
     Indication: MAJOR DEPRESSION
     Dosage: 25 MG - 200 MG
     Route: 048
     Dates: start: 20001201, end: 20040601
  3. ABILIFY [Concomitant]
     Dates: start: 20030105
  4. GEODON [Concomitant]
     Dates: start: 20060101
  5. GEODON [Concomitant]
     Dates: start: 20060609

REACTIONS (4)
  - BLOOD GLUCOSE ABNORMAL [None]
  - DIABETES MELLITUS [None]
  - DIABETIC KETOACIDOSIS [None]
  - DIABETIC NEPHROPATHY [None]
